FAERS Safety Report 7603537-7 (Version None)
Quarter: 2011Q3

REPORT INFORMATION
  Report Type: 
  Country: None (occurrence: None)
  Receive Date: 20110712
  Receipt Date: 20110708
  Transmission Date: 20111222
  Serious: Yes (Death, Life-Threatening, Hospitalization)
  Sender: FDA-Public Use
  Company Number: JP-ASTRAZENECA-2011SE38079

PATIENT
  Age: 19 Year
  Sex: Female

DRUGS (11)
  1. FLUNITRAZEPAM [Concomitant]
     Indication: INSOMNIA
     Route: 048
     Dates: start: 20110301, end: 20110621
  2. CEFPIROME SULFATE [Concomitant]
     Indication: INFLAMMATION
     Route: 041
     Dates: start: 20110617, end: 20110621
  3. CARBOCAIN [Suspect]
     Indication: EPIDURAL ANAESTHESIA
     Dosage: 100-200 MG/DOSE
     Route: 008
     Dates: start: 20110617, end: 20110621
  4. LUVOX [Concomitant]
     Indication: ANXIETY
     Dosage: TWO TIMES A DAY
     Route: 048
     Dates: start: 20110301, end: 20110621
  5. PENTAZOCINE LACTATE [Concomitant]
     Indication: PAIN MANAGEMENT
     Dosage: DOSE UNKNOWN, 1-2 DOSES/DAY
     Route: 058
     Dates: start: 20110617, end: 20110621
  6. DEPAKENE [Concomitant]
     Indication: EPILEPSY
     Route: 048
     Dates: start: 20110301, end: 20110621
  7. SEROQUEL [Concomitant]
     Indication: INSOMNIA
     Route: 048
     Dates: start: 20110301, end: 20110621
  8. ALPRAZOLAM [Concomitant]
     Indication: INSOMNIA
     Route: 048
     Dates: start: 20110301, end: 20110621
  9. VOLTAREN [Concomitant]
     Indication: PAIN MANAGEMENT
     Dosage: 25 MG, 2-4 DOSES/DAY
     Route: 054
     Dates: start: 20110617, end: 20110621
  10. ATARAX [Concomitant]
     Indication: PAIN MANAGEMENT
     Dosage: DOSE UNKNOWN, 1-2 DOSES/DAY
     Route: 058
     Dates: start: 20110617, end: 20110621
  11. DIAZEPAM [Concomitant]
     Indication: ANXIETY
     Dosage: DOSE UNKNOWN, 1-2 DOSES/DAY
     Route: 042
     Dates: start: 20110621, end: 20110621

REACTIONS (1)
  - CARDIO-RESPIRATORY ARREST [None]
